FAERS Safety Report 18519368 (Version 2)
Quarter: 2020Q4

REPORT INFORMATION
  Report Type: Report from Study
  Country: JP (occurrence: JP)
  Receive Date: 20201119
  Receipt Date: 20201211
  Transmission Date: 20210114
  Serious: Yes (Other)
  Sender: FDA-Public Use
  Company Number: JP-JNJFOC-20201120900

PATIENT

DRUGS (3)
  1. DEXAMETHASONE. [Suspect]
     Active Substance: DEXAMETHASONE
     Indication: PLASMA CELL MYELOMA
     Route: 065
  2. LENALIDOMIDE HYDRATE [Suspect]
     Active Substance: LENALIDOMIDE
     Indication: PLASMA CELL MYELOMA
     Route: 048
  3. DARZALEX [Suspect]
     Active Substance: DARATUMUMAB
     Indication: PLASMA CELL MYELOMA
     Route: 041

REACTIONS (10)
  - Hepatic function abnormal [Unknown]
  - Febrile neutropenia [Unknown]
  - Malaise [Unknown]
  - Platelet count decreased [Unknown]
  - Pneumonia [Unknown]
  - Infusion related reaction [Unknown]
  - Plasma cell myeloma [Unknown]
  - Pyrexia [Unknown]
  - Rash [Unknown]
  - Neutrophil count decreased [Unknown]
